FAERS Safety Report 19620656 (Version 1)
Quarter: 2021Q3

REPORT INFORMATION
  Report Type: Spontaneous
  Country: US (occurrence: US)
  Receive Date: 20210728
  Receipt Date: 20210728
  Transmission Date: 20211014
  Serious: Yes (Hospitalization, Disabling)
  Sender: FDA-Public Use
  Company Number: None

PATIENT
  Age: 52 Year
  Sex: Female
  Weight: 83.25 kg

DRUGS (10)
  1. MAGNESIUM [Concomitant]
     Active Substance: MAGNESIUM
  2. XIFAXAN [Concomitant]
     Active Substance: RIFAXIMIN
  3. LEVETIRACETAM. [Suspect]
     Active Substance: LEVETIRACETAM
     Indication: SEIZURE
     Dosage: ?          QUANTITY:1 TABLET(S);?
     Route: 048
     Dates: start: 20210518, end: 20210702
  4. DOCUSTATE SODIUM [Concomitant]
  5. LEVETIRACETAM. [Suspect]
     Active Substance: LEVETIRACETAM
     Indication: ELECTROENCEPHALOGRAM ABNORMAL
     Dosage: ?          QUANTITY:1 TABLET(S);?
     Route: 048
     Dates: start: 20210518, end: 20210702
  6. METFORMIN [Concomitant]
     Active Substance: METFORMIN HYDROCHLORIDE
  7. L?ARGININE [Concomitant]
     Active Substance: ARGININE
  8. ACIDOPHILUS [Concomitant]
     Active Substance: LACTOBACILLUS ACIDOPHILUS
  9. VITAMIN D [Concomitant]
     Active Substance: VITAMIN D NOS
  10. VITAMIN K [Concomitant]
     Active Substance: PHYTONADIONE

REACTIONS (9)
  - Dysgraphia [None]
  - Mental status changes [None]
  - Somnolence [None]
  - Confusional state [None]
  - Malaise [None]
  - Aphasia [None]
  - Eye movement disorder [None]
  - Asthenia [None]
  - Amnesia [None]

NARRATIVE: CASE EVENT DATE: 20210522
